FAERS Safety Report 7801069-4 (Version None)
Quarter: 2011Q4

REPORT INFORMATION
  Report Type: 
  Country: None (occurrence: None)
  Receive Date: 20111007
  Receipt Date: 20111003
  Transmission Date: 20120403
  Serious: No
  Sender: FDA-Public Use
  Company Number: US-BIOGENIDEC-2011BI036362

PATIENT
  Age: 43 Year
  Sex: Male

DRUGS (1)
  1. TYSABRI [Suspect]
     Indication: MULTIPLE SCLEROSIS
     Route: 042
     Dates: start: 20080320

REACTIONS (5)
  - MEMORY IMPAIRMENT [None]
  - EYELID DISORDER [None]
  - DIABETES MELLITUS [None]
  - DYSARTHRIA [None]
  - DYSPHAGIA [None]
